FAERS Safety Report 6595608-1 (Version None)
Quarter: 2010Q1

REPORT INFORMATION
  Report Type: 
  Country: None (occurrence: None)
  Receive Date: 20100223
  Receipt Date: 20100212
  Transmission Date: 20100710
  Serious: Yes (Hospitalization)
  Sender: FDA-Public Use
  Company Number: JP-JNJFOC-20100101021

PATIENT
  Sex: Female
  Weight: 65 kg

DRUGS (8)
  1. REMICADE [Suspect]
     Indication: PSORIATIC ARTHROPATHY
     Dosage: 18 MONTHS
     Route: 042
  2. METHOTREXATE [Suspect]
     Indication: DRUG USE FOR UNKNOWN INDICATION
     Dosage: DOSE: 4 MG PER WEEK INCREASED TO 17.5 MG PER WEEK
     Route: 048
  3. METHOTREXATE [Suspect]
     Dosage: DOSE: 4 MG PER WEEK INCREASED TO 8 MG PER WEEK
     Route: 048
  4. NSAIDS [Concomitant]
     Route: 048
  5. BUCILLAMINE [Concomitant]
     Route: 048
  6. FOLIAMIN [Concomitant]
     Route: 048
  7. TAKEPRON [Concomitant]
     Route: 048
  8. OTHER COLD COMBINATION PREPARATIONS [Concomitant]

REACTIONS (4)
  - DNA ANTIBODY POSITIVE [None]
  - ERYTHEMA [None]
  - PNEUMOCYSTIS JIROVECI PNEUMONIA [None]
  - RASH [None]
